FAERS Safety Report 5132588-X (Version None)
Quarter: 2006Q4

REPORT INFORMATION
  Report Type: 
  Country: None (occurrence: None)
  Receive Date: 20061017
  Receipt Date: 20061006
  Transmission Date: 20070319
  Serious: Yes (Hospitalization)
  Sender: FDA-Public Use
  Company Number: 230809

PATIENT
  Age: 77 Year
  Sex: Female

DRUGS (2)
  1. ACTIVACIN (ALTEPLASE) PWDR + SOLVENT, INFUSION SOLN [Suspect]
     Indication: CEREBRAL ARTERY EMBOLISM
     Dosage: 31.9 MG, SINGLE, INTRAVENOUS
     Route: 042
     Dates: start: 20060607, end: 20060607
  2. RADICUT (EDARAVONE) [Concomitant]

REACTIONS (4)
  - CONDITION AGGRAVATED [None]
  - DIABETES MELLITUS [None]
  - HAEMORRHAGIC CEREBRAL INFARCTION [None]
  - PANCREATITIS [None]
